FAERS Safety Report 23782249 (Version 4)
Quarter: 2024Q2

REPORT INFORMATION
  Report Type: Spontaneous
  Country: US (occurrence: US)
  Receive Date: 20240425
  Receipt Date: 20240605
  Transmission Date: 20240716
  Serious: No
  Sender: FDA-Public Use
  Company Number: US-HALEON-2170118

PATIENT
  Age: 57 Year
  Sex: Male

DRUGS (1)
  1. ADVIL LIQUI-GELS [Suspect]
     Active Substance: IBUPROFEN
     Indication: Product used for unknown indication
     Dosage: EXPDATE:202602
     Dates: start: 20240421, end: 20240421

REACTIONS (5)
  - Vomiting [Unknown]
  - Product taste abnormal [Unknown]
  - Burning sensation [Recovering/Resolving]
  - Oral discomfort [Unknown]
  - Product complaint [Unknown]

NARRATIVE: CASE EVENT DATE: 20240421
